FAERS Safety Report 12517023 (Version 1)
Quarter: 2016Q2

REPORT INFORMATION
  Report Type: Spontaneous
  Country: US (occurrence: US)
  Receive Date: 20160630
  Receipt Date: 20160630
  Transmission Date: 20160815
  Serious: No
  Sender: FDA-Public Use
  Company Number: US-009507513-1606USA010409

PATIENT
  Age: 47 Year
  Sex: Male

DRUGS (2)
  1. ZETIA [Suspect]
     Active Substance: EZETIMIBE
     Dosage: UNK
     Route: 048
     Dates: start: 201602
  2. LIVALO [Suspect]
     Active Substance: PITAVASTATIN CALCIUM

REACTIONS (1)
  - Low density lipoprotein abnormal [Unknown]

NARRATIVE: CASE EVENT DATE: 2016
